FAERS Safety Report 9879478 (Version 1)
Quarter: 2014Q1

REPORT INFORMATION
  Report Type: Spontaneous
  Country: DK (occurrence: DK)
  Receive Date: 20140206
  Receipt Date: 20140206
  Transmission Date: 20141002
  Serious: Yes (Disabling)
  Sender: FDA-Public Use
  Company Number: DK-WATSON-2014-01399

PATIENT
  Age: 53 Year
  Sex: Female
  Weight: 105 kg

DRUGS (1)
  1. ENALAPRIL ACTAVIS [Suspect]
     Indication: HYPERTENSION
     Dosage: 5 MG, BID; STRENGTH: 10 MG
     Route: 048
     Dates: start: 20130904, end: 20131213

REACTIONS (1)
  - Pain in extremity [Recovered/Resolved]
